FAERS Safety Report 8470964-8 (Version None)
Quarter: 2012Q2

REPORT INFORMATION
  Report Type: 
  Country: None (occurrence: None)
  Receive Date: 20120627
  Receipt Date: 20120618
  Transmission Date: 20120825
  Serious: Yes (Other)
  Sender: FDA-Public Use
  Company Number: CA-JNJFOC-20120609443

PATIENT
  Sex: Female
  Weight: 53 kg

DRUGS (2)
  1. REMICADE [Suspect]
     Dosage: 83RD INFUSION, FOR 52 WEEKS
     Route: 042
     Dates: start: 20120618
  2. REMICADE [Suspect]
     Indication: CROHN'S DISEASE
     Route: 042
     Dates: start: 20050101

REACTIONS (3)
  - FATIGUE [None]
  - BLOODY DISCHARGE [None]
  - SECRETION DISCHARGE [None]
